FAERS Safety Report 7560011-4 (Version None)
Quarter: 2011Q2

REPORT INFORMATION
  Report Type: 
  Country: None (occurrence: None)
  Receive Date: 20110621
  Receipt Date: 20110610
  Transmission Date: 20111010
  Serious: Yes (Other)
  Sender: FDA-Public Use
  Company Number: PHHY2011US51982

PATIENT
  Sex: Female

DRUGS (20)
  1. LYRICA [Concomitant]
     Dosage: 50 MG, UNK
     Dates: start: 20101029
  2. LUNESTA [Concomitant]
     Dosage: 2 MG, QD (AT BED TIME)
  3. ZOLPIDEM [Concomitant]
     Dosage: 12.5 MG, UNK
     Dates: start: 20101225
  4. GILENYA [Suspect]
     Indication: MULTIPLE SCLEROSIS
     Dosage: 0.5 MG, QD
     Route: 048
     Dates: start: 20110113
  5. FEMHRT [Concomitant]
     Dosage: 0.5/2.5 MG
     Dates: start: 20110524
  6. PROVIGIL [Concomitant]
     Dosage: 100 MG, UNK
     Dates: start: 20110517
  7. LUNESTA [Concomitant]
     Dosage: 3 MG, UNK
     Dates: start: 20110317
  8. CYMBALTA [Concomitant]
     Dosage: 60 MG, UNK
     Dates: start: 20110602
  9. BACLOFEN [Concomitant]
     Dosage: 20 MG, UNK
     Dates: start: 20110117
  10. ZOLPIDEM [Concomitant]
     Dosage: 10 MG, QD (AT BED TIME)
     Dates: end: 20090714
  11. LEXAPRO [Concomitant]
     Dosage: 20 MG, DAILY
     Dates: start: 20101005
  12. FAMPRIDINE [Concomitant]
     Dosage: 10 MG, BID
  13. LYRICA [Concomitant]
     Dosage: 75 MG, BID
  14. BONIVA [Concomitant]
     Dosage: 150 MG, MONTHLY
  15. COPAXONE [Concomitant]
     Dosage: 20 MG/ML DAILY
     Dates: end: 20110610
  16. AMBIEN [Concomitant]
     Dosage: 5 MG, QD (AT BED TIME)
     Dates: end: 20090714
  17. CLONAZEPAM [Concomitant]
     Dosage: 0.25 MG, UNK
     Dates: start: 20110322
  18. BACLOFEN [Concomitant]
     Dosage: 10 MG, TID
  19. FLUOXETINE HCL [Concomitant]
     Dosage: 20 MG, DAILY
     Dates: end: 20090714
  20. CLARINEX [Concomitant]
     Dosage: 5 MG, PRN
     Dates: end: 20090714

REACTIONS (2)
  - LOCALISED INFECTION [None]
  - EYE INFECTION [None]
